FAERS Safety Report 20098826 (Version 4)
Quarter: 2023Q2

REPORT INFORMATION
  Report Type: Spontaneous
  Country: AU (occurrence: AU)
  Receive Date: 20211122
  Receipt Date: 20230427
  Transmission Date: 20230721
  Serious: Yes (Other)
  Sender: FDA-Public Use
  Company Number: AU-MYLANLABS-2021M1084863

PATIENT
  Sex: Female

DRUGS (1)
  1. CLOZARIL [Suspect]
     Active Substance: CLOZAPINE
     Indication: Schizophrenia
     Dosage: 500 MILLIGRAM, QD
     Route: 048
     Dates: start: 20080606

REACTIONS (4)
  - Gestational diabetes [Unknown]
  - Acute psychosis [Unknown]
  - Maternal exposure during pregnancy [Recovered/Resolved]
  - Malaise [Unknown]
